FAERS Safety Report 8999498 (Version 1)
Quarter: 2013Q1

REPORT INFORMATION
  Report Type: Spontaneous
  Country: ES (occurrence: ES)
  Receive Date: 20130103
  Receipt Date: 20130103
  Transmission Date: 20140127
  Serious: Yes (Death, Life-Threatening, Hospitalization, Other)
  Sender: FDA-Public Use
  Company Number: ES-009507513-1212ESP009696

PATIENT
  Age: 57 Year
  Sex: Female
  Weight: 77.2 kg

DRUGS (12)
  1. VICTRELIS [Suspect]
     Indication: CHRONIC HEPATITIS C
     Dosage: 800 MG, Q8H
     Route: 048
     Dates: start: 20121107
  2. RIBAVIRIN [Suspect]
     Indication: CHRONIC HEPATITIS C
     Dosage: UNK UNK, QD
     Route: 048
     Dates: start: 20121005, end: 20121106
  3. RIBAVIRIN [Suspect]
     Dosage: 400 MG, BID
     Route: 048
     Dates: start: 20121106, end: 20121120
  4. RIBAVIRIN [Suspect]
     Dosage: 1 TABLET IN THE MORNING AND 2 TABLETS AT NIGHT
     Route: 048
     Dates: start: 20121120, end: 20121211
  5. RIBAVIRIN [Suspect]
     Dosage: 200 MG, BID
     Route: 048
     Dates: start: 20121211, end: 20121216
  6. PEGASYS [Suspect]
     Indication: CHRONIC HEPATITIS C
     Dosage: 180 MICROGRAM, QW
     Route: 058
     Dates: start: 20121005, end: 20121211
  7. PEGASYS [Suspect]
     Dosage: 135 MICROGRAM, QW
     Route: 058
     Dates: start: 20121211, end: 20121216
  8. OMEPRAZOLE [Concomitant]
     Dosage: 20 MG, BID
     Route: 048
     Dates: start: 20121211
  9. METOCLOPRAMIDE [Concomitant]
     Dosage: 10 MG, TID
     Route: 048
     Dates: start: 20121211
  10. DESLORATADINE [Concomitant]
     Dosage: 5 MG, QD
     Route: 048
     Dates: start: 20121211
  11. EPROSARTAN MESYLATE (+) HYDROCHLOROTHIAZIDE [Concomitant]
     Indication: HYPERTENSION
     Dosage: 600 MILLIGRAM PER 12.5 MILLIGRAM DAILY
     Route: 048
     Dates: end: 20121216
  12. SPIRONOLACTONE [Concomitant]
     Indication: ASCITES
     Dosage: 100 MG, QD
     Route: 048
     Dates: start: 20120619, end: 20121216

REACTIONS (18)
  - Sepsis [Fatal]
  - Discomfort [Not Recovered/Not Resolved]
  - Nausea [Not Recovered/Not Resolved]
  - Vomiting [Not Recovered/Not Resolved]
  - Decreased appetite [Not Recovered/Not Resolved]
  - Haemoglobin decreased [Not Recovered/Not Resolved]
  - Anaemia [Not Recovered/Not Resolved]
  - Pyrexia [Unknown]
  - Dyspnoea [Unknown]
  - Headache [Unknown]
  - Oedema peripheral [Not Recovered/Not Resolved]
  - Pruritus [Unknown]
  - Nausea [Unknown]
  - Haemoglobin decreased [Not Recovered/Not Resolved]
  - Fatigue [Unknown]
  - Dizziness [Unknown]
  - Dysgeusia [Unknown]
  - Tachycardia [Recovered/Resolved]
